FAERS Safety Report 17570685 (Version 22)
Quarter: 2024Q3

REPORT INFORMATION
  Report Type: Report from Study
  Country: CA (occurrence: CA)
  Receive Date: 20200323
  Receipt Date: 20240829
  Transmission Date: 20241017
  Serious: Yes (Other)
  Sender: ROCHE
  Company Number: CA-ROCHE-2559985

PATIENT
  Age: 30 Year
  Sex: Female

DRUGS (5)
  1. OCREVUS [Suspect]
     Active Substance: OCRELIZUMAB
     Indication: Relapsing-remitting multiple sclerosis
     Dosage: MORE DOSAGE INFORMATION IS 300 MG AT DAY 0 AND 14, THEN 600 MG EVERY 6 MONTH.
     Route: 042
     Dates: start: 20200224
  2. OCREVUS [Suspect]
     Active Substance: OCRELIZUMAB
     Route: 042
  3. OCREVUS [Suspect]
     Active Substance: OCRELIZUMAB
     Route: 042
  4. OCREVUS [Suspect]
     Active Substance: OCRELIZUMAB
     Route: 042
  5. OCREVUS [Suspect]
     Active Substance: OCRELIZUMAB
     Route: 042

REACTIONS (23)
  - Stress [Unknown]
  - Multiple sclerosis [Not Recovered/Not Resolved]
  - Agitation [Unknown]
  - Infusion related reaction [Recovered/Resolved]
  - Dyspnoea [Not Recovered/Not Resolved]
  - Gastroenteritis [Not Recovered/Not Resolved]
  - Oral herpes [Not Recovered/Not Resolved]
  - Infusion related reaction [Recovered/Resolved]
  - Nausea [Unknown]
  - Dyspnoea [Not Recovered/Not Resolved]
  - Gastroenteritis viral [Recovered/Resolved]
  - Oral herpes [Recovered/Resolved]
  - Abscess oral [Recovering/Resolving]
  - Tonsillar hypertrophy [Recovering/Resolving]
  - Pain in extremity [Not Recovered/Not Resolved]
  - Oral fungal infection [Unknown]
  - Abscess of salivary gland [Recovered/Resolved]
  - Skin plaque [Unknown]
  - Mass [Unknown]
  - Lipoma [Unknown]
  - Therapy non-responder [Unknown]
  - Burning sensation [Not Recovered/Not Resolved]
  - Infusion related reaction [Recovered/Resolved]

NARRATIVE: CASE EVENT DATE: 20200224
